FAERS Safety Report 7671120-3 (Version None)
Quarter: 2011Q3

REPORT INFORMATION
  Report Type: 
  Country: None (occurrence: None)
  Receive Date: 20110809
  Receipt Date: 20110725
  Transmission Date: 20111222
  Serious: Yes (Other)
  Sender: FDA-Public Use
  Company Number: FR-UCBSA-017460

PATIENT
  Sex: Female

DRUGS (1)
  1. KEPPRA [Suspect]
     Indication: EPILEPSY
     Dosage: LEVETIRACETAM SINCE 19-DEC-2007 (1000MG DAILY PROGRESIVELY INTRODUCED).

REACTIONS (2)
  - PREGNANCY [None]
  - ABORTION INDUCED [None]
